FAERS Safety Report 16863304 (Version 1)
Quarter: 2019Q3

REPORT INFORMATION
  Report Type: Spontaneous
  Country: CN (occurrence: CN)
  Receive Date: 20190927
  Receipt Date: 20190927
  Transmission Date: 20191005
  Serious: Yes (Other)
  Sender: FDA-Public Use
  Company Number: CN-PFIZER INC-2019412840

PATIENT
  Age: 3 Year
  Sex: Male
  Weight: 14.4 kg

DRUGS (2)
  1. ROCEPHIN [Suspect]
     Active Substance: CEFTRIAXONE SODIUM
     Indication: LARYNGITIS
     Dosage: 1.2 G, 1X/DAY
     Route: 041
     Dates: start: 20190823, end: 20190823
  2. SOLU-MEDROL [Suspect]
     Active Substance: METHYLPREDNISOLONE SODIUM SUCCINATE
     Indication: LARYNGITIS
     Dosage: 30 MG, 1X/DAY
     Route: 041
     Dates: start: 20190823, end: 20190823

REACTIONS (2)
  - Pruritus [Recovering/Resolving]
  - Rash [Recovering/Resolving]

NARRATIVE: CASE EVENT DATE: 20190823
